FAERS Safety Report 6020073-2 (Version None)
Quarter: 2008Q4

REPORT INFORMATION
  Report Type: 
  Country: None (occurrence: None)
  Receive Date: 20081226
  Receipt Date: 20081215
  Transmission Date: 20090506
  Serious: Yes (Life-Threatening)
  Sender: FDA-Public Use
  Company Number: JP-BAYER-200812833BYL

PATIENT
  Age: 75 Year
  Sex: Male
  Weight: 53 kg

DRUGS (7)
  1. ADALAT CC [Suspect]
     Indication: HYPERTENSION
     Dosage: TOTAL DAILY DOSE: 40 MG  UNIT DOSE: 20 MG
     Route: 048
     Dates: start: 20081023, end: 20081114
  2. LENDORMIN D [Concomitant]
     Dosage: TOTAL DAILY DOSE: 1 DF
     Route: 048
     Dates: start: 20081001
  3. JU-KAMA [Concomitant]
     Dosage: TOTAL DAILY DOSE: 3 G
     Route: 048
     Dates: start: 20081001
  4. PURSENNID [Concomitant]
     Route: 048
     Dates: start: 20081001
  5. URSO 250 [Concomitant]
     Indication: HEPATITIS C
     Dosage: TOTAL DAILY DOSE: 600 MG  UNIT DOSE: 100 MG
     Route: 048
     Dates: end: 20081001
  6. GASPORT [Concomitant]
     Dosage: TOTAL DAILY DOSE: 80 MG  UNIT DOSE: 20 MG
     Route: 048
     Dates: end: 20081001
  7. CORINAEL L [Concomitant]
     Route: 048
     Dates: end: 20081001

REACTIONS (1)
  - NEUTROPENIA [None]
